FAERS Safety Report 13535728 (Version 1)
Quarter: 2017Q2

REPORT INFORMATION
  Report Type: Spontaneous
  Country: HR (occurrence: HR)
  Receive Date: 20170511
  Receipt Date: 20170511
  Transmission Date: 20170830
  Serious: Yes (Other)
  Sender: FDA-Public Use
  Company Number: HR-PFIZER INC-2017207278

PATIENT
  Age: 17 Year
  Sex: Female

DRUGS (3)
  1. DIAZEPAM. [Suspect]
     Active Substance: DIAZEPAM
     Dosage: 10 TABLETS
     Route: 048
     Dates: start: 20170307, end: 20170307
  2. ZOLOFT [Suspect]
     Active Substance: SERTRALINE HYDROCHLORIDE
     Dosage: ONE TABLET
     Route: 048
     Dates: start: 20170307, end: 20170307
  3. RIVOTRIL [Suspect]
     Active Substance: CLONAZEPAM
     Dosage: TWO TABLETS
     Route: 048
     Dates: start: 20170307, end: 20170307

REACTIONS (3)
  - Somnolence [Unknown]
  - Suicide attempt [Unknown]
  - Overdose [Unknown]

NARRATIVE: CASE EVENT DATE: 20170307
